FAERS Safety Report 18153095 (Version 2)
Quarter: 2021Q2

REPORT INFORMATION
  Report Type: Spontaneous
  Country: US (occurrence: US)
  Receive Date: 20200815
  Receipt Date: 20210407
  Transmission Date: 20210717
  Serious: No
  Sender: FDA-Public Use
  Company Number: US-ROCHE-2657109

PATIENT
  Age: 51 Year
  Sex: Female
  Weight: 92.62 kg

DRUGS (15)
  1. SALINEX NASAL SPRAY [Concomitant]
     Indication: NASAL DRYNESS
  2. ZYRTEC (UNITED STATES) [Concomitant]
     Indication: RHINITIS ALLERGIC
     Dosage: 20 MG (TWO 10 MG TABLETS) BY MOUTH TWICE DAILY
     Route: 048
  3. MELATONIN [Concomitant]
     Active Substance: MELATONIN
  4. IMITREX [Concomitant]
     Active Substance: SUMATRIPTAN SUCCINATE
     Indication: MIGRAINE
     Dosage: 50 MG BY MOUTH AS NEEDED
     Route: 048
  5. XOLAIR [Suspect]
     Active Substance: OMALIZUMAB
     Dosage: 300 MG SUBCUTANEOUSLY EVERY 4 WEEKS
     Route: 058
     Dates: start: 20200609, end: 20200723
  6. ZYRTEC (UNITED STATES) [Concomitant]
     Indication: CHRONIC SPONTANEOUS URTICARIA
  7. XOLAIR [Suspect]
     Active Substance: OMALIZUMAB
     Indication: CHRONIC SPONTANEOUS URTICARIA
     Route: 058
     Dates: start: 20200723
  8. ALLEGRA [Concomitant]
     Active Substance: FEXOFENADINE HYDROCHLORIDE
     Indication: CHRONIC SPONTANEOUS URTICARIA
  9. PREDNISONE. [Concomitant]
     Active Substance: PREDNISONE
     Indication: URTICARIA
  10. ALLEGRA [Concomitant]
     Active Substance: FEXOFENADINE HYDROCHLORIDE
     Indication: RHINITIS ALLERGIC
     Dosage: 360 MG (TWO 180 MG TABLETS) BY MOUTH TWICE DAILY
     Route: 048
     Dates: start: 20200519
  11. FAMOTIDINE. [Concomitant]
     Active Substance: FAMOTIDINE
     Route: 048
  12. SINGULAIR [Concomitant]
     Active Substance: MONTELUKAST SODIUM
     Indication: RHINITIS ALLERGIC
     Dosage: 10 MG BY MOUTH ONCE DAILY
     Route: 048
  13. BENADRYL [Concomitant]
     Active Substance: DIPHENHYDRAMINE HYDROCHLORIDE
     Indication: URTICARIA
  14. GABAPENTIN. [Concomitant]
     Active Substance: GABAPENTIN
     Indication: NEURALGIA
     Dosage: 200 MG (TWO 100MG CAPSULES) BY MOUTH 3 TIMES DAILY
     Route: 048
  15. CYCLOBENZAPRINE. [Concomitant]
     Active Substance: CYCLOBENZAPRINE
     Indication: MUSCLE SPASMS

REACTIONS (2)
  - COVID-19 [Not Recovered/Not Resolved]
  - Off label use [Unknown]

NARRATIVE: CASE EVENT DATE: 20200723
